FAERS Safety Report 14128507 (Version 1)
Quarter: 2017Q4

REPORT INFORMATION
  Report Type: Spontaneous
  Country: RU (occurrence: RU)
  Receive Date: 20171026
  Receipt Date: 20171026
  Transmission Date: 20180321
  Serious: Yes (Hospitalization)
  Sender: FDA-Public Use
  Company Number: RU-ASTRAZENECA-2017SF08222

PATIENT
  Age: 54 Year
  Sex: Male
  Weight: 84.5 kg

DRUGS (8)
  1. CARDIOMAGNYL [Concomitant]
     Active Substance: ASPIRIN\MAGNESIUM HYDROXIDE
  2. METFORMIN [Concomitant]
     Active Substance: METFORMIN HYDROCHLORIDE
  3. TORASEMIDE [Concomitant]
     Active Substance: TORSEMIDE
  4. BRILINTA [Suspect]
     Active Substance: TICAGRELOR
     Indication: MYOCARDIAL INFARCTION
     Route: 048
     Dates: start: 201704
  5. VEROSPIRON [Concomitant]
     Active Substance: SPIRONOLACTONE
  6. LISINOPRIL. [Concomitant]
     Active Substance: LISINOPRIL
  7. DIABETON MB [Concomitant]
     Active Substance: GLICLAZIDE
  8. LIPRIMAR [Concomitant]
     Active Substance: ATORVASTATIN CALCIUM

REACTIONS (2)
  - Angina unstable [Recovered/Resolved]
  - Dyspnoea [Recovered/Resolved]

NARRATIVE: CASE EVENT DATE: 201709
